FAERS Safety Report 21579188 (Version 1)
Quarter: 2022Q4

REPORT INFORMATION
  Report Type: Spontaneous
  Country: US (occurrence: US)
  Receive Date: 20221110
  Receipt Date: 20221110
  Transmission Date: 20230113
  Serious: No
  Sender: FDA-Public Use
  Company Number: US-SANOFI-01353108

PATIENT
  Sex: Female

DRUGS (1)
  1. ADMELOG [Suspect]
     Active Substance: INSULIN LISPRO
     Dosage: 12 IU, QID

REACTIONS (2)
  - Peripheral swelling [Unknown]
  - Blood glucose abnormal [Unknown]
